FAERS Safety Report 7417503-8 (Version None)
Quarter: 2011Q2

REPORT INFORMATION
  Report Type: 
  Country: None (occurrence: None)
  Receive Date: 20110415
  Receipt Date: 20110330
  Transmission Date: 20111010
  Serious: Yes (Life-Threatening, Hospitalization)
  Sender: FDA-Public Use
  Company Number: PL-AMGEN-UK385903

PATIENT
  Age: 50 Year
  Sex: Female
  Weight: 60 kg

DRUGS (6)
  1. ROMIPLOSTIM [Suspect]
     Dosage: UNK UNK, QWK
     Route: 058
     Dates: start: 20090622
  2. ROMIPLOSTIM [Suspect]
     Indication: IDIOPATHIC THROMBOCYTOPENIC PURPURA
     Dosage: UNK UNK, QWK
     Route: 058
     Dates: start: 20090622
  3. ROMIPLOSTIM [Suspect]
     Dosage: UNK UNK, QWK
     Route: 058
     Dates: start: 20090622
  4. METHYLPREDNISOLONE [Concomitant]
     Dosage: 8 MG, QD
     Route: 048
     Dates: start: 20090626
  5. ROMIPLOSTIM [Suspect]
     Dosage: UNK UNK, QWK
     Route: 058
     Dates: start: 20090622
  6. OMEPRAZOLE [Concomitant]
     Dosage: 20 MG, QD
     Route: 048
     Dates: start: 20100113

REACTIONS (1)
  - IDIOPATHIC THROMBOCYTOPENIC PURPURA [None]
